FAERS Safety Report 7953655-9 (Version None)
Quarter: 2011Q4

REPORT INFORMATION
  Report Type: 
  Country: None (occurrence: None)
  Receive Date: 20111202
  Receipt Date: 20111128
  Transmission Date: 20120403
  Serious: Yes (Death)
  Sender: FDA-Public Use
  Company Number: US-JNJFOC-20111008354

PATIENT
  Sex: Female

DRUGS (16)
  1. TOPAMAX [Suspect]
     Route: 048
  2. CITALOPRAM HYDROBROMIDE [Suspect]
     Route: 065
     Dates: start: 20100218
  3. RELPAX [Concomitant]
     Route: 065
  4. CITALOPRAM HYDROBROMIDE [Suspect]
     Indication: DEPRESSION
     Route: 065
     Dates: start: 20100504
  5. DESYREL [Concomitant]
     Indication: SLEEP DISORDER
     Route: 065
     Dates: start: 20100504
  6. MORPHINE [Concomitant]
     Route: 065
  7. TOPAMAX [Suspect]
     Indication: MIGRAINE PROPHYLAXIS
     Route: 048
     Dates: start: 20091105
  8. METFORMIN HCL [Concomitant]
     Route: 065
     Dates: start: 20110203
  9. NEXIUM [Concomitant]
     Route: 048
     Dates: start: 20100318
  10. CITALOPRAM HYDROBROMIDE [Suspect]
     Route: 065
     Dates: start: 20091105
  11. SINGULAIR [Concomitant]
     Route: 048
  12. ALLEGRA [Concomitant]
     Route: 048
  13. TOPAMAX [Suspect]
     Route: 048
     Dates: start: 20100504
  14. MAXALT [Concomitant]
     Route: 065
     Dates: start: 20100121
  15. TOPAMAX [Suspect]
     Route: 048
     Dates: start: 20100218
  16. MAXALT [Concomitant]
     Route: 065
     Dates: start: 20110203

REACTIONS (8)
  - PSYCHIATRIC SYMPTOM [None]
  - ROAD TRAFFIC ACCIDENT [None]
  - HEADACHE [None]
  - UPPER-AIRWAY COUGH SYNDROME [None]
  - BLOOD PRESSURE INCREASED [None]
  - HYPERSENSITIVITY [None]
  - DIABETES MELLITUS [None]
  - DEPRESSION [None]
